FAERS Safety Report 7075033-X (Version None)
Quarter: 2010Q4

REPORT INFORMATION
  Report Type: 
  Country: None (occurrence: None)
  Receive Date: 20101029
  Receipt Date: 20100202
  Transmission Date: 20110411
  Serious: No
  Sender: FDA-Public Use
  Company Number: US-WYE-H13407910

PATIENT
  Age: 80 Year
  Sex: Female
  Weight: 74.91 kg

DRUGS (1)
  1. ADVIL PM [Suspect]
     Indication: INSOMNIA
     Dosage: 2 CAPLETS ONCE
     Route: 048
     Dates: start: 20100201, end: 20100201

REACTIONS (3)
  - DRUG EFFECT PROLONGED [None]
  - FATIGUE [None]
  - SOMNOLENCE [None]
